FAERS Safety Report 12873239 (Version 1)
Quarter: 2020Q3

REPORT INFORMATION
  Report Type: Spontaneous
  Country: FR (occurrence: FR)
  Receive Date: 20161021
  Receipt Date: 20161021
  Transmission Date: 20201104
  Serious: Yes (Hospitalization)
  Sender: FDA-Public Use
  Company Number: FR-SA-2016SA187975

PATIENT
  Age: 76 Year
  Sex: Female

DRUGS (9)
  1. AUGMENTIN [Suspect]
     Active Substance: AMOXICILLIN\CLAVULANATE POTASSIUM
     Indication: PROPHYLAXIS
     Route: 065
     Dates: start: 20160726, end: 20160728
  2. CELOCURINE /00057702/ [Suspect]
     Active Substance: SUCCINYLCHOLINE CHLORIDE
     Indication: ANAESTHESIA
     Route: 042
     Dates: start: 20160726, end: 20160726
  3. PROPOFOL. [Suspect]
     Active Substance: PROPOFOL
     Indication: ANAESTHESIA
     Route: 042
     Dates: start: 20160726, end: 20160726
  4. NIFLUGEL [Suspect]
     Active Substance: NIFLUMIC ACID
     Dosage: 2.5 %, GEL
     Route: 003
     Dates: start: 2016, end: 20160802
  5. EPHEDRINE. [Suspect]
     Active Substance: EPHEDRINE
     Route: 042
     Dates: start: 20160726, end: 20160726
  6. MORPHINE [Suspect]
     Active Substance: MORPHINE
     Indication: PAIN
     Route: 048
     Dates: start: 20160726, end: 20160804
  7. SUFENTANIL MYLAN [Suspect]
     Active Substance: SUFENTANIL
     Indication: ANAESTHESIA
     Route: 042
     Dates: start: 20160726, end: 20160726
  8. ZOPHREN [Suspect]
     Active Substance: ONDANSETRON
     Route: 042
     Dates: start: 20160726, end: 20160802
  9. LOVENOX [Suspect]
     Active Substance: ENOXAPARIN SODIUM
     Indication: THROMBOSIS PROPHYLAXIS
     Route: 058
     Dates: start: 20160726, end: 20160804

REACTIONS (4)
  - Rash maculo-papular [Recovering/Resolving]
  - Lymphopenia [Recovered/Resolved]
  - Pyrexia [Recovered/Resolved]
  - Eosinophilia [Recovered/Resolved]

NARRATIVE: CASE EVENT DATE: 20160728
